FAERS Safety Report 21099930 (Version 3)
Quarter: 2022Q3

REPORT INFORMATION
  Report Type: Spontaneous
  Country: GR (occurrence: GR)
  Receive Date: 20220719
  Receipt Date: 20220916
  Transmission Date: 20221027
  Serious: Yes (Death, Hospitalization, Other)
  Sender: FDA-Public Use
  Company Number: GR-002147023-NVSC2022GR156807

PATIENT
  Age: 54 Year
  Sex: Female

DRUGS (2)
  1. FINGOLIMOD [Suspect]
     Active Substance: FINGOLIMOD
     Indication: Relapsing-remitting multiple sclerosis
     Dosage: 0.5 MILLIGRAM, QD
     Route: 065
  2. FINGOLIMOD [Suspect]
     Active Substance: FINGOLIMOD
     Indication: Multiple sclerosis

REACTIONS (6)
  - Respiratory muscle weakness [Fatal]
  - Respiratory failure [Fatal]
  - Rebound effect [Fatal]
  - Neurological decompensation [Fatal]
  - Osteomyelitis [Recovered/Resolved]
  - Mediastinal abscess [Recovered/Resolved]
